FAERS Safety Report 17152792 (Version 2)
Quarter: 2019Q4

REPORT INFORMATION
  Report Type: Spontaneous
  Country: US (occurrence: US)
  Receive Date: 20191213
  Receipt Date: 20191227
  Transmission Date: 20200122
  Serious: Yes (Hospitalization, Other)
  Sender: FDA-Public Use
  Company Number: US-ASTRAZENECA-2019SF77410

PATIENT
  Age: 26187 Day
  Sex: Female
  Weight: 78 kg

DRUGS (22)
  1. ATROVENT HFA [Concomitant]
     Active Substance: IPRATROPIUM BROMIDE
  2. DEXILANT [Concomitant]
     Active Substance: DEXLANSOPRAZOLE
  3. FASENRA [Suspect]
     Active Substance: BENRALIZUMAB
     Indication: ASTHMA
     Route: 058
     Dates: start: 20191112, end: 20191112
  4. QVAR [Concomitant]
     Active Substance: BECLOMETHASONE DIPROPIONATE
  5. DIAZEPAM. [Concomitant]
     Active Substance: DIAZEPAM
  6. LEVOTHYROXINE. [Concomitant]
     Active Substance: LEVOTHYROXINE
  7. FASENRA [Suspect]
     Active Substance: BENRALIZUMAB
     Indication: ASTHMA
     Route: 058
     Dates: start: 20191112, end: 20191112
  8. BUDESONIDE. [Suspect]
     Active Substance: BUDESONIDE
     Dosage: 0.5MG UNKNOWN
     Route: 055
  9. ACYCLOVIR. [Concomitant]
     Active Substance: ACYCLOVIR
  10. DILT XR [Concomitant]
     Dosage: 240MG 3.125 MG EVERY OTHER DAY, 120 MG 3.125 MG EVERY OTHER DAY
  11. VALSARTAN. [Concomitant]
     Active Substance: VALSARTAN
     Dosage: 320.0MG UNKNOWN
  12. CARVEDILOL. [Concomitant]
     Active Substance: CARVEDILOL
     Dosage: 6.25 MG EVERY OTHER DAY , 3.125 MG EVERY OTHER DAY
  13. FLUTICASONE PROPIONATE. [Concomitant]
     Active Substance: FLUTICASONE PROPIONATE
     Dosage: 50 MG
  14. FUROSEMIDE. [Concomitant]
     Active Substance: FUROSEMIDE
  15. QUETIAPINE. [Suspect]
     Active Substance: QUETIAPINE
     Dosage: 100 MG EVERY OTHER DAY AND 200 MG EVERY OTHER DAY
     Route: 048
  16. IPRATROPIUM BROMIDE. [Concomitant]
     Active Substance: IPRATROPIUM BROMIDE
     Dosage: 0.02%
  17. AMLODIPINE [Concomitant]
     Active Substance: AMLODIPINE BESYLATE
  18. POTASSIUM CHLORIDE ER [Concomitant]
     Active Substance: POTASSIUM CHLORIDE
     Dosage: 10MEG
  19. RANITIDINE. [Concomitant]
     Active Substance: RANITIDINE
     Dosage: 150.0MG UNKNOWN
  20. MONTELUKAST [Concomitant]
     Active Substance: MONTELUKAST SODIUM
  21. PREDNISONE. [Concomitant]
     Active Substance: PREDNISONE
     Dosage: 20MG EVERY OTHER DAY
  22. TRIAMCINOLONE CREAM 0.1% [Concomitant]
     Active Substance: TRIAMCINOLONE
     Dosage: 0.1 PERCENT TOPICAL

REACTIONS (7)
  - Rash [Recovered/Resolved]
  - Erythema [Recovering/Resolving]
  - Asthma [Unknown]
  - Pneumonia pseudomonal [Unknown]
  - Peripheral swelling [Recovered/Resolved]
  - Swelling of eyelid [Recovered/Resolved]
  - Dermatitis allergic [Unknown]

NARRATIVE: CASE EVENT DATE: 20191113
